FAERS Safety Report 17706737 (Version 2)
Quarter: 2020Q2

REPORT INFORMATION
  Report Type: Spontaneous
  Country: US (occurrence: CA)
  Receive Date: 20200424
  Receipt Date: 20200618
  Transmission Date: 20200714
  Serious: Yes (Other)
  Sender: FDA-Public Use
  Company Number: CA-BIOMARINAP-CA-2020-129776

PATIENT
  Age: 14 Year
  Sex: Female
  Weight: 33.2 kg

DRUGS (2)
  1. DICLOFENAC [Concomitant]
     Active Substance: DICLOFENAC
     Indication: ARTHRALGIA
     Dosage: 10 PERCENT
  2. ALDURAZYME [Suspect]
     Active Substance: LARONIDASE
     Indication: MUCOPOLYSACCHARIDOSIS I
     Dosage: 0.52 MILLIGRAM/KILOGRAM, QOW
     Route: 041
     Dates: start: 20110509

REACTIONS (4)
  - Emotional disorder [Unknown]
  - Inappropriate schedule of product administration [Unknown]
  - Mitral valve thickening [Not Recovered/Not Resolved]
  - Oral herpes [Unknown]
